FAERS Safety Report 11074804 (Version 1)
Quarter: 2015Q2

REPORT INFORMATION
  Report Type: Spontaneous
  Country: GB (occurrence: None)
  Receive Date: 20150427
  Receipt Date: 20150427
  Transmission Date: 20150821
  Serious: Yes (Other)
  Sender: FDA-Public Use
  Company Number: GB-H14001-15-00610

PATIENT
  Age: 58 Year
  Sex: Male

DRUGS (6)
  1. SERTRALINE (SERTRALINE) (UNKNOWN) (SERTRALINE)` [Concomitant]
  2. NOVORAPID (INSULIN ASPART) (UNKNOWN) (INSULIN ASPART) [Concomitant]
  3. CO-AMOXICLAV (AUGMENTIN /00756801/) (UNKNOWN) (AMOXICILLIN SODIUM, CLAVULANATE POTASSIUM) [Suspect]
     Active Substance: AMOXICILLIN\CLAVULANATE POTASSIUM
     Indication: PRODUCT USED FOR UNKNOWN INDICATION
     Dosage: 500 MG (500 MG, 1 IN 1 D), ORAL
     Route: 048
     Dates: start: 20140408, end: 20140408
  4. LISINOPRIL (LISINOPRIL) (UNKNOWN) (LISINOPRIL) [Concomitant]
     Active Substance: LISINOPRIL
  5. LOPERAMIDE (LOPERAMIDE) (UNKNOWN) (LOPERAMIDE) [Concomitant]
  6. METOCLOPRAMIDE (METOCLOPRAMIDE) (UNKNOWN) (METOCOPRAMIDE) [Concomitant]

REACTIONS (1)
  - Abdominal pain upper [None]

NARRATIVE: CASE EVENT DATE: 20140408
